FAERS Safety Report 17238027 (Version 1)
Quarter: 2020Q1

REPORT INFORMATION
  Report Type: Spontaneous
  Country: US (occurrence: US)
  Receive Date: 20200106
  Receipt Date: 20200106
  Transmission Date: 20200409
  Serious: No
  Sender: FDA-Public Use
  Company Number: US-PACIRA-201900106

PATIENT
  Age: 63 Year
  Sex: Male

DRUGS (1)
  1. EXPAREL [Suspect]
     Active Substance: BUPIVACAINE
     Indication: PREOPERATIVE CARE
     Dosage: 10 ML (20 ML OF 1.3%  LIPOSOMAL BUPIVACAINE DILUTED W/ 20 ML OF NORMAL SALINE TO TOTAL VOL OF 40 ML)

REACTIONS (2)
  - No adverse event [Unknown]
  - Off label use [Unknown]
